FAERS Safety Report 5038709-1 (Version None)
Quarter: 2006Q2

REPORT INFORMATION
  Report Type: 
  Country: None (occurrence: None)
  Receive Date: 20060629
  Receipt Date: 20060505
  Transmission Date: 20061013
  Serious: No
  Sender: FDA-Public Use
  Company Number: US-BRISTOL-MYERS SQUIBB COMPANY-13369806

PATIENT
  Age: 51 Year
  Sex: Male
  Weight: 91 kg

DRUGS (4)
  1. REYATAZ [Suspect]
     Indication: HIV INFECTION
     Dates: start: 20050501
  2. RITONAVIR [Concomitant]
     Indication: HIV INFECTION
     Dates: start: 20050501
  3. SUSTIVA [Concomitant]
  4. VIDEX [Concomitant]

REACTIONS (3)
  - DIARRHOEA [None]
  - VOMITING [None]
  - WEIGHT DECREASED [None]
